FAERS Safety Report 6735158-2 (Version None)
Quarter: 2010Q2

REPORT INFORMATION
  Report Type: 
  Country: None (occurrence: None)
  Receive Date: 20100521
  Receipt Date: 20100510
  Transmission Date: 20101027
  Serious: Yes (Other)
  Sender: FDA-Public Use
  Company Number: CA-JNJFOC-20100504578

PATIENT
  Sex: Female
  Weight: 100 kg

DRUGS (3)
  1. REMICADE [Suspect]
     Indication: CROHN'S DISEASE
     Route: 042
  2. IMURAN [Concomitant]
     Dosage: 3.5 PILLS
  3. WARFARIN SODIUM [Concomitant]

REACTIONS (2)
  - CELLULITIS [None]
  - POST PROCEDURAL COMPLICATION [None]
